FAERS Safety Report 7902044-1 (Version None)
Quarter: 2011Q4

REPORT INFORMATION
  Report Type: 
  Country: None (occurrence: None)
  Receive Date: 20111108
  Receipt Date: 20111103
  Transmission Date: 20120403
  Serious: Yes (Hospitalization)
  Sender: FDA-Public Use
  Company Number: US-GLAXOSMITHKLINE-A0952214A

PATIENT
  Age: 55 Year
  Sex: Male
  Weight: 106.4 kg

DRUGS (17)
  1. CIPRO [Concomitant]
  2. LACTULOSE [Concomitant]
  3. ROPINIROLE [Suspect]
     Indication: RESTLESS LEGS SYNDROME
     Route: 048
     Dates: end: 20111008
  4. BLINDED TRIAL MEDICATION [Concomitant]
     Indication: HEPATIC ENCEPHALOPATHY
     Route: 048
     Dates: start: 20110921, end: 20111007
  5. LEVOTHYROXINE SODIUM [Concomitant]
  6. LITHIUM CARBONATE [Concomitant]
  7. RIFAXIMIN [Concomitant]
  8. AMITRIPTYLINE HCL [Concomitant]
     Dates: end: 20111008
  9. ZINC SULFATE [Concomitant]
  10. HYDROXINE [Concomitant]
  11. COMBIVENT [Concomitant]
  12. FUROSEMIDE [Concomitant]
  13. ARIPIPRAZOLE [Concomitant]
     Dates: end: 20111008
  14. PROPRANOLOL [Concomitant]
  15. CITALOPRAM HYDROBROMIDE [Concomitant]
  16. CALCIUM CARBONATE [Concomitant]
  17. POTASSIUM CHLORIDE [Concomitant]

REACTIONS (1)
  - ACUTE PSYCHOSIS [None]
